FAERS Safety Report 6998132-7 (Version None)
Quarter: 2010Q3

REPORT INFORMATION
  Report Type: 
  Country: None (occurrence: None)
  Receive Date: 20100920
  Receipt Date: 20071112
  Transmission Date: 20110219
  Serious: Yes (Other)
  Sender: FDA-Public Use
  Company Number: US-ASTRAZENECA-2006UW23177

PATIENT
  Sex: Male
  Weight: 73 kg

DRUGS (8)
  1. SEROQUEL [Suspect]
     Indication: DEPRESSION
     Route: 048
     Dates: start: 20040101
  2. SEROQUEL [Suspect]
     Route: 048
  3. XANAX [Concomitant]
     Dosage: FOUR DAILY
     Dates: start: 20040824
  4. KLONOPIN [Concomitant]
     Dosage: FOUR DAILY
     Dates: start: 20040824
  5. LITHIUM CARBONATE [Concomitant]
     Dosage: STRENGTH-300MG, 600MG DOSE-900MG DAILY
     Dates: start: 20040101
  6. REMERON [Concomitant]
     Dates: start: 20040101
  7. VISTARIL [Concomitant]
     Dates: start: 20040824
  8. KERLONE [Concomitant]
     Indication: ANXIETY
     Dates: start: 20040824

REACTIONS (1)
  - PANCREATITIS [None]
